FAERS Safety Report 8901568 (Version 1)
Quarter: 2012Q4

REPORT INFORMATION
  Report Type: Spontaneous
  Country: US (occurrence: None)
  Receive Date: 20121108
  Receipt Date: 20121108
  Transmission Date: 20130627
  Serious: Yes (Other)
  Sender: FDA-Public Use
  Company Number: None

PATIENT
  Sex: Male
  Weight: 94.35 kg

DRUGS (1)
  1. LEVETIRACETAM 500 MG [Suspect]
     Indication: EPILEPSY
     Route: 048
     Dates: start: 2010, end: 2012

REACTIONS (4)
  - Convulsion [None]
  - Product substitution issue [None]
  - Insomnia [None]
  - Anger [None]
